FAERS Safety Report 7843180-8 (Version None)
Quarter: 2011Q4

REPORT INFORMATION
  Report Type: 
  Country: None (occurrence: None)
  Receive Date: 20111025
  Receipt Date: 20111020
  Transmission Date: 20120403
  Serious: No
  Sender: FDA-Public Use
  Company Number: US-PFIZER INC-2011254305

PATIENT
  Sex: Female
  Weight: 104 kg

DRUGS (3)
  1. COLESTID [Suspect]
     Dosage: 4 G, 2X/DAY
     Route: 048
  2. PREMARIN [Concomitant]
     Dosage: UNKNOWN DOSE
  3. COLESTID [Suspect]
     Indication: COLITIS
     Dosage: 1 G, 4X/DAY
     Route: 048
     Dates: start: 20110301

REACTIONS (1)
  - DYSPHAGIA [None]
